APPROVED DRUG PRODUCT: EPHEDRINE SULFATE
Active Ingredient: EPHEDRINE SULFATE
Strength: 50MG/10ML (5MG/ML)
Dosage Form/Route: SOLUTION;INTRAVENOUS
Application: N213994 | Product #001 | TE Code: AP2
Applicant: PH HEALTH LTD
Approved: Oct 16, 2020 | RLD: Yes | RS: Yes | Type: RX

PATENTS:
Patent 10869845 | Expires: Jan 22, 2040